FAERS Safety Report 17002169 (Version 8)
Quarter: 2020Q3

REPORT INFORMATION
  Report Type: Report from Study
  Country: US (occurrence: US)
  Receive Date: 20191106
  Receipt Date: 20200825
  Transmission Date: 20201102
  Serious: Yes (Other)
  Sender: FDA-Public Use
  Company Number: US-DSJP-DSU-2019-141027

PATIENT
  Sex: Female

DRUGS (3)
  1. PEXIDARTINIB [Suspect]
     Active Substance: PEXIDARTINIB
     Dosage: 200 MG, QD
     Route: 048
     Dates: start: 20191122
  2. PEXIDARTINIB [Suspect]
     Active Substance: PEXIDARTINIB
     Indication: SYNOVITIS
     Dosage: 200MG QAM, 400MG QPM
     Route: 048
     Dates: start: 20191015
  3. PEXIDARTINIB [Suspect]
     Active Substance: PEXIDARTINIB
     Dosage: 400MG QAM, 200MG QPM
     Route: 048
     Dates: start: 20191015

REACTIONS (13)
  - Alanine aminotransferase increased [Recovered/Resolved]
  - Pruritus [Unknown]
  - Dysgeusia [Unknown]
  - Abdominal pain [Recovered/Resolved]
  - Gamma-glutamyltransferase increased [Recovered/Resolved]
  - Fatigue [Unknown]
  - Aspartate aminotransferase increased [Recovered/Resolved]
  - Abnormal sensation in eye [Unknown]
  - Hair colour changes [Unknown]
  - Skin discolouration [Recovered/Resolved]
  - Blood bilirubin increased [Recovered/Resolved]
  - Nausea [Recovered/Resolved]
  - Decreased appetite [Unknown]

NARRATIVE: CASE EVENT DATE: 2019
